FAERS Safety Report 11742674 (Version 6)
Quarter: 2016Q4

REPORT INFORMATION
  Report Type: Spontaneous
  Country: US (occurrence: US)
  Receive Date: 20151116
  Receipt Date: 20161208
  Transmission Date: 20170206
  Serious: Yes (Life-Threatening, Congenital Anomaly, Other)
  Sender: FDA-Public Use
  Company Number: PHEH2015US023727

PATIENT
  Sex: Female

DRUGS (1)
  1. ZOFRAN [Suspect]
     Active Substance: ONDANSETRON HYDROCHLORIDE
     Indication: FOETAL EXPOSURE DURING PREGNANCY
     Dosage: MOTHER^S DOSE: 2 MG PER ML AT 0.5 ML PER HOUR (QH)
     Route: 064

REACTIONS (22)
  - Congenital anomaly [Unknown]
  - Heterotaxia [Unknown]
  - Emotional distress [Unknown]
  - Pain [Unknown]
  - Anhedonia [Unknown]
  - Developmental delay [Unknown]
  - Transposition of the great vessels [Unknown]
  - Patent ductus arteriosus [Unknown]
  - Echo virus infection [Unknown]
  - Abdominal hernia [Unknown]
  - Ventricular septal defect [Unknown]
  - Abscess [Unknown]
  - Anxiety [Unknown]
  - Congenital pulmonary valve atresia [Unknown]
  - Foetal exposure during pregnancy [Unknown]
  - Dextrocardia [Unknown]
  - Hypoplastic left heart syndrome [Unknown]
  - Cellulitis [Unknown]
  - Injury [Unknown]
  - Heart disease congenital [Unknown]
  - Sleep apnoea syndrome [Unknown]
  - Cardiomegaly [Unknown]
